FAERS Safety Report 9319229 (Version 1)
Quarter: 2013Q2

REPORT INFORMATION
  Report Type: Spontaneous
  Country: US (occurrence: None)
  Receive Date: 20130529
  Receipt Date: 20130529
  Transmission Date: 20140414
  Serious: Yes (Other)
  Sender: FDA-Public Use
  Company Number: None

PATIENT
  Age: 2 Year
  Sex: Female
  Weight: 12.3 kg

DRUGS (2)
  1. TRILEPTAL [Suspect]
     Indication: EPILEPSY
     Route: 048
     Dates: start: 200906
  2. TRILEPTAL [Suspect]
     Indication: CEREBRAL PALSY
     Route: 048
     Dates: start: 200906

REACTIONS (2)
  - Convulsion [None]
  - Epilepsy [None]
